FAERS Safety Report 22084201 (Version 1)
Quarter: 2023Q1

REPORT INFORMATION
  Report Type: Report from Study
  Country: CR (occurrence: CR)
  Receive Date: 20230310
  Receipt Date: 20230310
  Transmission Date: 20230418
  Serious: Yes (Hospitalization, Other)
  Sender: FDA-Public Use
  Company Number: CR-BAYER-2023A026718

PATIENT
  Age: 43 Year
  Sex: Female

DRUGS (2)
  1. DIENOGEST\ESTRADIOL VALERATE [Suspect]
     Active Substance: DIENOGEST\ESTRADIOL VALERATE
     Indication: Heavy menstrual bleeding
     Dosage: UNK
     Dates: end: 202211
  2. YAZ [Suspect]
     Active Substance: DROSPIRENONE\ETHINYL ESTRADIOL
     Indication: Polycystic ovaries
     Dosage: UNK
     Dates: start: 20230227

REACTIONS (5)
  - Breast cancer [Recovered/Resolved with Sequelae]
  - Uterine cancer [Recovered/Resolved]
  - Breast operation [Recovered/Resolved with Sequelae]
  - Off label use [None]
  - Off label use [Unknown]

NARRATIVE: CASE EVENT DATE: 20200101
